FAERS Safety Report 6886343-0 (Version None)
Quarter: 2010Q3

REPORT INFORMATION
  Report Type: 
  Country: None (occurrence: None)
  Receive Date: 20100729
  Receipt Date: 20090108
  Transmission Date: 20110219
  Serious: No
  Sender: FDA-Public Use
  Company Number: US-PFIZER INC-2009154003

PATIENT
  Sex: Female

DRUGS (3)
  1. CELEBREX [Suspect]
     Dosage: 200 MG, 2X/DAY
     Dates: start: 20081101
  2. DICLOFENAC [Concomitant]
     Dosage: 7.5 MG, 3X/DAY
  3. ANAPROX [Concomitant]
     Dosage: UNK

REACTIONS (2)
  - ARTHRALGIA [None]
  - MUSCLE SPASMS [None]
